FAERS Safety Report 12681183 (Version 3)
Quarter: 2016Q4

REPORT INFORMATION
  Report Type: Spontaneous
  Country: JP (occurrence: JP)
  Receive Date: 20160824
  Receipt Date: 20161011
  Transmission Date: 20170207
  Serious: Yes (Life-Threatening, Hospitalization)
  Sender: FDA-Public Use
  Company Number: JP-ASTRAZENECA-2016SE89767

PATIENT
  Age: 27548 Day
  Sex: Male

DRUGS (9)
  1. OMEPRAL [Concomitant]
     Active Substance: OMEPRAZOLE
     Dosage: DOSE UNKNOWN
     Route: 048
  2. ZYLORIC [Concomitant]
     Active Substance: ALLOPURINOL
     Dosage: TWO TIMES A DAY, DOSE UNKNOWN
     Route: 048
  3. CARDENALIN [Concomitant]
     Active Substance: DOXAZOSIN MESYLATE
     Dosage: TWO TIMES A DAY, DOSE UNKNOWN
     Route: 048
  4. SYMBICORT [Suspect]
     Active Substance: BUDESONIDE\FORMOTEROL FUMARATE DIHYDRATE
     Indication: ASTHMA
     Dosage: 2 DF, TWO TIMES A DAY, WITH AS-REQUIRED DOSE, TOTAL DAILY DOSE UP TO 8 INHALATIONS
     Route: 055
     Dates: start: 20140509, end: 20140731
  5. SYMBICORT [Suspect]
     Active Substance: BUDESONIDE\FORMOTEROL FUMARATE DIHYDRATE
     Indication: ASTHMA
     Dosage: 12 DF NUMBER OF SEPARATE DOSAGES UNKNOWN UNKNOWN
     Route: 055
  6. GLUFAST [Concomitant]
     Active Substance: MITIGLINIDE
     Dosage: THREE TIMES A DAY, DOSE UNKNOWN
     Route: 048
  7. AMLODIN [Concomitant]
     Active Substance: AMLODIPINE BESYLATE
     Route: 048
  8. TANATRIL [Concomitant]
     Active Substance: IMIDAPRIL
     Dosage: TWO TIMES A DAY, DOSE UNKNOWN
     Route: 048
  9. BEHYD-RA [Concomitant]
     Dosage: DAILY, DOSE UNKNOWN
     Route: 048

REACTIONS (2)
  - Myocardial infarction [Recovered/Resolved]
  - Incorrect dose administered [Unknown]

NARRATIVE: CASE EVENT DATE: 20140623
